FAERS Safety Report 13947629 (Version 1)
Quarter: 2017Q3

REPORT INFORMATION
  Report Type: Spontaneous
  Country: US (occurrence: US)
  Receive Date: 20170908
  Receipt Date: 20170908
  Transmission Date: 20171128
  Serious: No
  Sender: FDA-Public Use
  Company Number: US-009507513-1709USA000670

PATIENT

DRUGS (1)
  1. NOXAFIL [Suspect]
     Active Substance: POSACONAZOLE
     Dosage: SUSTAINED ACTION TABLET

REACTIONS (3)
  - Wrong technique in product usage process [Unknown]
  - Incorrect route of drug administration [Unknown]
  - No adverse event [Unknown]
